FAERS Safety Report 19959353 (Version 1)
Quarter: 2021Q4

REPORT INFORMATION
  Report Type: Spontaneous
  Country: KE (occurrence: KE)
  Receive Date: 20211015
  Receipt Date: 20211015
  Transmission Date: 20220303
  Serious: Yes (Other)
  Sender: FDA-Public Use
  Company Number: KE-SDP-000008

PATIENT
  Sex: Female

DRUGS (1)
  1. LEVONORGESTREL [Suspect]
     Active Substance: LEVONORGESTREL
     Indication: Contraception
     Route: 065
     Dates: start: 20201001

REACTIONS (3)
  - Therapeutic product ineffective [Unknown]
  - Pregnancy with implant contraceptive [Unknown]
  - Device failure [Unknown]
